FAERS Safety Report 4714194-1 (Version None)
Quarter: 2005Q3

REPORT INFORMATION
  Report Type: 
  Country: None (occurrence: None)
  Receive Date: 20050713
  Receipt Date: 20050713
  Transmission Date: 20060218
  Serious: Yes (Life-Threatening, Hospitalization)
  Sender: FDA-Public Use
  Company Number: None

PATIENT
  Age: 18 Year
  Sex: Female
  Weight: 48.9885 kg

DRUGS (1)
  1. BACTRIM [Suspect]
     Indication: MALAISE
     Dosage: ORAL
     Route: 048
     Dates: start: 20050211, end: 20050218

REACTIONS (8)
  - GASTROINTESTINAL HAEMORRHAGE [None]
  - HEPATITIS FULMINANT [None]
  - INTERNATIONAL NORMALISED RATIO INCREASED [None]
  - LEUKOCYTOSIS [None]
  - PYREXIA [None]
  - RASH PRURITIC [None]
  - SELF-MEDICATION [None]
  - STEVENS-JOHNSON SYNDROME [None]
